FAERS Safety Report 4590985-5 (Version None)
Quarter: 2005Q1

REPORT INFORMATION
  Report Type: 
  Country: None (occurrence: None)
  Receive Date: 20050222
  Receipt Date: 20050222
  Transmission Date: 20050727
  Serious: No
  Sender: FDA-Public Use
  Company Number: None

PATIENT
  Age: 83 Year
  Sex: Female

DRUGS (12)
  1. LEPIRUDAN [Suspect]
     Indication: HEPARIN-INDUCED THROMBOCYTOPENIA
     Dosage: 12 MG BOLUS BOLUS IV
     Route: 042
     Dates: start: 20040317, end: 20040317
  2. PREVACID [Concomitant]
  3. NOVOLIN 70/30 [Concomitant]
  4. HALOPERIDOL [Concomitant]
  5. CLONAZEPAM [Concomitant]
  6. GLIPIZIDE [Concomitant]
  7. ENOXAPARIN SODIUM [Concomitant]
  8. WARFARIN SODIUM [Concomitant]
  9. APAP TAB [Concomitant]
  10. RISPERIDONE [Concomitant]
  11. MOXIFLOXACIN HCL [Concomitant]
  12. CEFEPIME [Concomitant]

REACTIONS (2)
  - ALANINE AMINOTRANSFERASE INCREASED [None]
  - ASPARTATE AMINOTRANSFERASE INCREASED [None]
